FAERS Safety Report 13874287 (Version 2)
Quarter: 2017Q3

REPORT INFORMATION
  Report Type: Spontaneous
  Country: BR (occurrence: BR)
  Receive Date: 20170816
  Receipt Date: 20170826
  Transmission Date: 20171127
  Serious: Yes (Other)
  Sender: FDA-Public Use
  Company Number: BR-ALEXION-A201709203

PATIENT
  Age: 35 Year
  Sex: Female

DRUGS (2)
  1. SOLIRIS [Suspect]
     Active Substance: ECULIZUMAB
     Dosage: 1200 MG, Q2W
     Route: 042
     Dates: start: 20150814
  2. SOLIRIS [Suspect]
     Active Substance: ECULIZUMAB
     Indication: HAEMOLYTIC URAEMIC SYNDROME
     Dosage: 900 MG, FOR 4 WEEKS
     Route: 042
     Dates: start: 20150718, end: 20150807

REACTIONS (9)
  - Tracheobronchitis [Unknown]
  - Chills [Unknown]
  - Infection [Unknown]
  - Hyperhidrosis [Recovered/Resolved]
  - Cough [Not Recovered/Not Resolved]
  - Bacteraemia [Unknown]
  - Viral pharyngitis [Not Recovered/Not Resolved]
  - Inappropriate schedule of drug administration [Recovered/Resolved]
  - Pyrexia [Recovered/Resolved]

NARRATIVE: CASE EVENT DATE: 20170730
